FAERS Safety Report 5066997-4 (Version None)
Quarter: 2006Q3

REPORT INFORMATION
  Report Type: 
  Country: None (occurrence: None)
  Receive Date: 20060728
  Receipt Date: 20060724
  Transmission Date: 20061208
  Serious: Yes (Death)
  Sender: FDA-Public Use
  Company Number: USA-2006-0024479

PATIENT
  Age: 61 Year
  Sex: Female
  Weight: 73 kg

DRUGS (10)
  1. OXYCONTIN [Suspect]
     Indication: PAIN
     Dosage: SEE IMAGE
     Dates: start: 20060607, end: 20060601
  2. OXYCONTIN [Suspect]
     Indication: PAIN
     Dosage: SEE IMAGE
     Dates: start: 20060530
  3. PEMETREXED (PEMETREXED) [Concomitant]
  4. CYANOCOBALAMIN [Concomitant]
  5. ADVAIR DISKUS (FLUTICASONE PROPIONATE, SALMETEROL XINAFOATE) [Concomitant]
  6. ALBUTEROL [Concomitant]
  7. ANDANSETRON [Concomitant]
  8. COLACE CAPSULES (DOCUSATE SODIUM) [Concomitant]
  9. FUROSEMIDE [Concomitant]
  10. PERCOCET [Concomitant]

REACTIONS (4)
  - INADEQUATE ANALGESIA [None]
  - LUNG NEOPLASM MALIGNANT [None]
  - MALIGNANT NEOPLASM PROGRESSION [None]
  - PAIN [None]
